FAERS Safety Report 11238595 (Version 1)
Quarter: 2015Q3

REPORT INFORMATION
  Report Type: Spontaneous
  Country: MX (occurrence: MX)
  Receive Date: 20150706
  Receipt Date: 20150706
  Transmission Date: 20151125
  Serious: Yes (Death)
  Sender: FDA-Public Use
  Company Number: MX-ROCHE-1602175

PATIENT
  Age: 72 Year
  Sex: Female
  Weight: 85 kg

DRUGS (2)
  1. HERCEPTIN [Suspect]
     Active Substance: TRASTUZUMAB
     Indication: BREAST CANCER METASTATIC
     Dosage: 2 CYCLES ADMINISTERED
     Route: 065
     Dates: start: 20150413, end: 20150525
  2. VINORELBINE [Suspect]
     Active Substance: VINORELBINE\VINORELBINE TARTRATE
     Indication: BREAST CANCER METASTATIC
     Dosage: 2 CYCLES ADMINISTERED
     Route: 065
     Dates: start: 20150413, end: 20150525

REACTIONS (1)
  - Death [Fatal]
